FAERS Safety Report 20701944 (Version 1)
Quarter: 2022Q2

REPORT INFORMATION
  Report Type: Spontaneous
  Country: US (occurrence: None)
  Receive Date: 20220412
  Receipt Date: 20220412
  Transmission Date: 20220720
  Serious: Yes (Other)
  Sender: FDA-Public Use
  Company Number: None

PATIENT
  Sex: Male

DRUGS (1)
  1. HUMIRA [Suspect]
     Active Substance: ADALIMUMAB
     Indication: Dermatitis
     Dosage: 40/0.8 MG/ML EVERY 14 DAYS SC?
     Route: 058
     Dates: start: 20220317

REACTIONS (1)
  - Therapy non-responder [None]
